FAERS Safety Report 25874574 (Version 1)
Quarter: 2025Q4

REPORT INFORMATION
  Report Type: Spontaneous
  Country: US (occurrence: None)
  Receive Date: 20251002
  Receipt Date: 20251002
  Transmission Date: 20260118
  Serious: Yes (Hospitalization)
  Sender: FDA-CTU
  Company Number: None

PATIENT
  Age: 41 Year
  Sex: Female
  Weight: 131.54 kg

DRUGS (14)
  1. NEXPLANON [Suspect]
     Active Substance: ETONOGESTREL
  2. LOSARTAN [Concomitant]
     Active Substance: LOSARTAN
  3. inverse [Concomitant]
  4. vitriol [Concomitant]
  5. ELIQUIS [Concomitant]
     Active Substance: APIXABAN
  6. METFORMIN [Concomitant]
     Active Substance: METFORMIN HYDROCHLORIDE
  7. CLONIDINE [Concomitant]
     Active Substance: CLONIDINE
  8. WELLBUTRIN [Concomitant]
     Active Substance: BUPROPION HYDROCHLORIDE
  9. TRAZODONE [Concomitant]
     Active Substance: TRAZODONE HYDROCHLORIDE
  10. LURASIDONE [Concomitant]
     Active Substance: LURASIDONE
  11. PRAZOSIN [Concomitant]
     Active Substance: PRAZOSIN
  12. ELIQUIS [Concomitant]
     Active Substance: APIXABAN
  13. IBUPROFEN [Concomitant]
     Active Substance: IBUPROFEN
  14. TYLENOL [Concomitant]
     Active Substance: ACETAMINOPHEN

REACTIONS (5)
  - Fatigue [None]
  - Dyspnoea [None]
  - Hypertension [None]
  - Drug interaction [None]
  - Pulmonary embolism [None]

NARRATIVE: CASE EVENT DATE: 20250915
